FAERS Safety Report 17625474 (Version 1)
Quarter: 2020Q2

REPORT INFORMATION
  Report Type: Spontaneous
  Country: AU (occurrence: AU)
  Receive Date: 20200403
  Receipt Date: 20200403
  Transmission Date: 20200713
  Serious: Yes (Hospitalization, Other)
  Sender: FDA-Public Use
  Company Number: AU-ACCORD-170903

PATIENT
  Age: 31 Year
  Sex: Female

DRUGS (5)
  1. RANITIDINE. [Suspect]
     Active Substance: RANITIDINE
     Indication: PRODUCT USED FOR UNKNOWN INDICATION
  2. MONTELUKAST [Suspect]
     Active Substance: MONTELUKAST SODIUM
     Indication: ANGIOEDEMA
  3. TRANEXAMIC ACID. [Suspect]
     Active Substance: TRANEXAMIC ACID
     Indication: MENORRHAGIA
  4. LORATADINE. [Suspect]
     Active Substance: LORATADINE
     Dosage: 20 MG BD
     Route: 048
  5. COLCHICINE. [Suspect]
     Active Substance: COLCHICINE
     Dosage: 500 MCG BD
     Route: 048

REACTIONS (6)
  - Off label use [Unknown]
  - Swelling [Recovered/Resolved]
  - Drug ineffective [Unknown]
  - Angioedema [Recovered/Resolved]
  - Swollen tongue [Recovered/Resolved]
  - Discomfort [Recovered/Resolved]

NARRATIVE: CASE EVENT DATE: 20200121
